FAERS Safety Report 4336266-6 (Version None)
Quarter: 2004Q2

REPORT INFORMATION
  Report Type: 
  Country: None (occurrence: None)
  Receive Date: 20040407
  Receipt Date: 20040322
  Transmission Date: 20050107
  Serious: Yes (Life-Threatening, Hospitalization, Disabling)
  Sender: FDA-Public Use
  Company Number: JP_040302843

PATIENT
  Age: 60 Year
  Sex: Male

DRUGS (4)
  1. ONCOVIN [Suspect]
     Indication: NON-HODGKIN'S LYMPHOMA
     Dates: start: 20010101, end: 20010101
  2. EFAVIRENZ [Concomitant]
  3. LAMIVUDINE [Concomitant]
  4. STAVUDINE [Concomitant]

REACTIONS (20)
  - BIOPSY MUSCLE ABNORMAL [None]
  - BULBAR PALSY [None]
  - CEREBRAL ATROPHY [None]
  - CSF PRESSURE INCREASED [None]
  - DEMENTIA [None]
  - DIPLEGIA [None]
  - DYSPEPSIA [None]
  - HYPOAESTHESIA [None]
  - HYPOREFLEXIA [None]
  - IIIRD NERVE PARALYSIS [None]
  - KORSAKOFF'S PSYCHOSIS NON-ALCOHOLIC [None]
  - MUSCLE ATROPHY [None]
  - MUSCLE DISORDER [None]
  - MUSCULAR WEAKNESS [None]
  - NAUSEA [None]
  - NERVE CONDUCTION STUDIES ABNORMAL [None]
  - NERVOUS SYSTEM DISORDER [None]
  - NEUROPATHY PERIPHERAL [None]
  - PARAESTHESIA [None]
  - VOMITING [None]
